FAERS Safety Report 6790362-2 (Version None)
Quarter: 2010Q2

REPORT INFORMATION
  Report Type: 
  Country: None (occurrence: None)
  Receive Date: 20100624
  Receipt Date: 20100611
  Transmission Date: 20101027
  Serious: Yes (Other)
  Sender: FDA-Public Use
  Company Number: PHHY2010BR38466

PATIENT
  Age: 74 Year
  Sex: Female

DRUGS (8)
  1. VOLTAREN [Suspect]
     Indication: PAIN
     Dosage: UNK
  2. CATAFLAM [Suspect]
     Dosage: UNK
  3. CALCIUM CARBONATE [Concomitant]
     Indication: OSTEOPOROSIS
     Dosage: 1 MG, 1 ENVELOP DAILY
  4. TYLENOL [Concomitant]
  5. SIMVASTATIN [Concomitant]
     Indication: HYPERCHOLESTEROLAEMIA
     Dosage: UNK
  6. VYTORIN [Concomitant]
  7. OXYGEN [Concomitant]
  8. CARDIZEM [Concomitant]
     Dosage: 30 MG, TID

REACTIONS (8)
  - ANAPHYLACTIC SHOCK [None]
  - BLOOD CHOLESTEROL INCREASED [None]
  - HYPERSENSITIVITY [None]
  - ORAL DISCOMFORT [None]
  - PAIN IN EXTREMITY [None]
  - PARAESTHESIA [None]
  - RESPIRATORY ARREST [None]
  - SYNCOPE [None]
